FAERS Safety Report 6527745-1 (Version None)
Quarter: 2010Q1

REPORT INFORMATION
  Report Type: 
  Country: None (occurrence: None)
  Receive Date: 20100106
  Receipt Date: 20100104
  Transmission Date: 20100710
  Serious: Yes (Other)
  Sender: FDA-Public Use
  Company Number: FR-WYE-G05263910

PATIENT
  Age: 13 Year
  Sex: Female

DRUGS (1)
  1. ADVIL [Suspect]
     Dosage: ONE SINGLE TABLET OF 200 MG
     Route: 048
     Dates: start: 20091101, end: 20091101

REACTIONS (4)
  - GENERALISED ERYTHEMA [None]
  - HYPERSENSITIVITY [None]
  - LOCAL SWELLING [None]
  - SKIN PLAQUE [None]
